FAERS Safety Report 11070927 (Version 5)
Quarter: 2015Q2

REPORT INFORMATION
  Report Type: Spontaneous
  Country: IT (occurrence: IT)
  Receive Date: 20150428
  Receipt Date: 20150629
  Transmission Date: 20150821
  Serious: Yes (Hospitalization)
  Sender: FDA-Public Use
  Company Number: IT-009507513-1504ITA021030

PATIENT
  Age: 67 Year
  Sex: Female
  Weight: 83 kg

DRUGS (14)
  1. RITONAVIR. [Suspect]
     Active Substance: RITONAVIR
     Indication: CHRONIC HEPATITIS C
     Dosage: 200 MG, CYCLICAL
     Route: 048
     Dates: start: 20150328, end: 20150409
  2. ABT-333 [Suspect]
     Active Substance: DASABUVIR
     Dosage: 500 MG, QD
     Route: 048
     Dates: start: 20150417
  3. INDERAL [Concomitant]
     Active Substance: PROPRANOLOL HYDROCHLORIDE
     Route: 048
  4. ABT-450 [Suspect]
     Active Substance: VERUPREVIR
     Indication: CHRONIC HEPATITIS C
     Dosage: UNK
     Route: 048
     Dates: start: 20150328, end: 20150409
  5. ABT-450 [Suspect]
     Active Substance: VERUPREVIR
     Dosage: UNK
     Route: 048
     Dates: start: 20150417
  6. REBETOL [Suspect]
     Active Substance: RIBAVIRIN
     Dosage: 1200 MG, QD
     Route: 048
     Dates: start: 20150417
  7. REBETOL [Suspect]
     Active Substance: RIBAVIRIN
     Indication: CHRONIC HEPATITIS C
     Dosage: 1200 MG, QD
     Route: 048
     Dates: start: 20150328, end: 20150409
  8. LOSARTAN POTASSIUM. [Concomitant]
     Active Substance: LOSARTAN POTASSIUM
     Indication: ESSENTIAL HYPERTENSION
     Dosage: UNK
     Route: 048
     Dates: start: 20150328, end: 20150409
  9. KONAKION [Concomitant]
     Active Substance: PHYTONADIONE
     Indication: COAGULOPATHY
     Dosage: STRENGTH 10 MG/ML, FORMULATION SOLUTION
     Route: 048
  10. ABT-267 [Suspect]
     Active Substance: INVESTIGATIONAL PRODUCT
     Dosage: UNK
     Route: 048
     Dates: start: 20150417
  11. ABT-333 [Suspect]
     Active Substance: DASABUVIR
     Indication: CHRONIC HEPATITIS C
     Dosage: 500 MG, QD
     Route: 048
     Dates: start: 20150328, end: 20150409
  12. ABT-267 [Suspect]
     Active Substance: INVESTIGATIONAL PRODUCT
     Indication: CHRONIC HEPATITIS C
     Dosage: 50 MG, QD
     Route: 048
     Dates: start: 20150328, end: 20150409
  13. RITONAVIR. [Suspect]
     Active Substance: RITONAVIR
     Dosage: UNK, CYCLIC
     Route: 048
     Dates: start: 20150417
  14. ESIDREX [Concomitant]
     Active Substance: HYDROCHLOROTHIAZIDE
     Indication: ESSENTIAL HYPERTENSION
     Dosage: UNK
     Route: 048
     Dates: start: 20150328, end: 20150409

REACTIONS (2)
  - Renal failure [Recovering/Resolving]
  - Jaundice [Recovering/Resolving]

NARRATIVE: CASE EVENT DATE: 20150410
